FAERS Safety Report 9319890 (Version 1)
Quarter: 2013Q2

REPORT INFORMATION
  Report Type: Spontaneous
  Country: US (occurrence: US)
  Receive Date: 20130530
  Receipt Date: 20130530
  Transmission Date: 20140414
  Serious: Yes (Other)
  Sender: FDA-Public Use
  Company Number: US-ASTRAZENECA-2013SE35999

PATIENT
  Age: 91 Year
  Sex: Male

DRUGS (3)
  1. SEROQUEL [Suspect]
     Route: 048
     Dates: start: 2013
  2. SEROQUEL [Suspect]
     Route: 048
     Dates: start: 2013
  3. ATIVAN [Concomitant]

REACTIONS (8)
  - Overdose [Unknown]
  - Myocardial infarction [Unknown]
  - Adverse drug reaction [Unknown]
  - Dementia [Unknown]
  - Bipolar disorder [Unknown]
  - Pneumonia [Unknown]
  - Aggression [Unknown]
  - Tongue disorder [Unknown]
